FAERS Safety Report 18871351 (Version 2)
Quarter: 2021Q1

REPORT INFORMATION
  Report Type: Spontaneous
  Country: US (occurrence: US)
  Receive Date: 20210210
  Receipt Date: 20210222
  Transmission Date: 20210420
  Serious: No
  Sender: FDA-Public Use
  Company Number: US-ASTRAZENECA-2020SF58216

PATIENT

DRUGS (1)
  1. BREZTRI AEROSPHERE [Suspect]
     Active Substance: BUDESONIDE\FORMOTEROL\GLYCOPYRRONIUM
     Dosage: 160 MCG 2 PUFFS TWO TIMES A DAY160UG/INHAL TWO TIMES A DAY
     Route: 055

REACTIONS (2)
  - Chest discomfort [Unknown]
  - Bronchospasm paradoxical [Unknown]
